FAERS Safety Report 9867057 (Version 1)
Quarter: 2014Q1

REPORT INFORMATION
  Report Type: Spontaneous
  Country: US (occurrence: None)
  Receive Date: 20140203
  Receipt Date: 20140203
  Transmission Date: 20141002
  Serious: Yes (Other)
  Sender: FDA-Public Use
  Company Number: None

PATIENT
  Age: 38 Year
  Sex: Female
  Weight: 70.31 kg

DRUGS (1)
  1. OCTREOTIDE ACETATE [Suspect]
     Indication: ACROMEGALY
     Dosage: GIVEN INTO/UNDER THE SKIN
     Route: 058
     Dates: start: 20131001, end: 20140131

REACTIONS (4)
  - Product quality issue [None]
  - Product substitution issue [None]
  - Injection site pain [None]
  - Injection site pain [None]
